FAERS Safety Report 14656610 (Version 5)
Quarter: 2018Q3

REPORT INFORMATION
  Report Type: Report from Study
  Country: PL (occurrence: PL)
  Receive Date: 20180319
  Receipt Date: 20180821
  Transmission Date: 20181010
  Serious: Yes (Other)
  Sender: FDA-Public Use
  Company Number: PL-CHIESI USA INC.-PL-2018CHI000061

PATIENT
  Age: 0 Day
  Sex: Female
  Weight: .94 kg

DRUGS (5)
  1. GENTAMYCIN                         /00047101/ [Concomitant]
     Active Substance: GENTAMICIN
     Indication: INFECTION PROPHYLAXIS
     Dosage: 4.7 MG, EVERY 48 HOURS
     Route: 042
     Dates: start: 20180308, end: 20180411
  2. CUROSURF [Suspect]
     Active Substance: PORACTANT ALFA
     Indication: NEONATAL RESPIRATORY DISTRESS SYNDROME
     Dosage: 200 MG, QD
     Route: 039
     Dates: start: 20180308, end: 20180308
  3. PEYONA [Concomitant]
     Indication: ANAEMIA
     Dosage: 20 MG, UNK
     Route: 042
     Dates: start: 20180308, end: 201804
  4. PEYONA [Concomitant]
     Indication: INFANTILE APNOEA
  5. AMPICILLIN [Concomitant]
     Active Substance: AMPICILLIN
     Indication: PRODUCT USED FOR UNKNOWN INDICATION
     Dosage: 94 MG, UNK
     Route: 042
     Dates: start: 20180308, end: 20180311

REACTIONS (3)
  - Bradycardia neonatal [Recovered/Resolved]
  - Neonatal hypoxia [Recovered/Resolved]
  - Drug administration error [Recovered/Resolved]

NARRATIVE: CASE EVENT DATE: 20180308
